FAERS Safety Report 25640964 (Version 1)
Quarter: 2025Q3

REPORT INFORMATION
  Report Type: Spontaneous
  Country: US (occurrence: US)
  Receive Date: 20250804
  Receipt Date: 20250804
  Transmission Date: 20251020
  Serious: No
  Sender: SANOFI AVENTIS
  Company Number: US-SA-2025SA222052

PATIENT
  Age: 78 Year
  Sex: Male

DRUGS (10)
  1. DUPIXENT [Suspect]
     Active Substance: DUPILUMAB
     Indication: Nasal polyps
     Dosage: 300 MG, QOW
     Route: 058
     Dates: start: 20220106
  2. ANASTROZOLE [Concomitant]
     Active Substance: ANASTROZOLE
  3. AZELEX [Concomitant]
     Active Substance: AZELAIC ACID
     Route: 065
  4. BUPRENORPHINE HYDROCHLORIDE [Concomitant]
     Active Substance: BUPRENORPHINE HYDROCHLORIDE
  5. ELIQUIS [Concomitant]
     Active Substance: APIXABAN
  6. FINASTERIDE [Concomitant]
     Active Substance: FINASTERIDE
  7. FLUTICASONE [Concomitant]
     Active Substance: FLUTICASONE
  8. METOPROLOL SUCCINATE [Concomitant]
     Active Substance: METOPROLOL SUCCINATE
  9. METRONIDAZOLE [Concomitant]
     Active Substance: METRONIDAZOLE
  10. MODAFINIL [Concomitant]
     Active Substance: MODAFINIL

REACTIONS (1)
  - Product dose omission in error [Unknown]

NARRATIVE: CASE EVENT DATE: 20250601
